FAERS Safety Report 16048529 (Version 1)
Quarter: 2019Q1

REPORT INFORMATION
  Report Type: Spontaneous
  Country: SE (occurrence: SE)
  Receive Date: 20190307
  Receipt Date: 20190307
  Transmission Date: 20190418
  Serious: Yes (Hospitalization)
  Sender: FDA-Public Use
  Company Number: SE-FRESENIUS KABI-FK201902423

PATIENT
  Age: 20 Year
  Sex: Male

DRUGS (3)
  1. RIFAPENTINE [Suspect]
     Active Substance: RIFAPENTINE
     Indication: LATENT TUBERCULOSIS
     Route: 065
  2. RIFAMPIN (MANUFACTURER UNKNOWN) [Suspect]
     Active Substance: RIFAMPIN
     Indication: LATENT TUBERCULOSIS
     Dosage: UNKNOWN
     Route: 065
  3. ISONIAZID. [Suspect]
     Active Substance: ISONIAZID
     Indication: LATENT TUBERCULOSIS
     Route: 065

REACTIONS (1)
  - Acute kidney injury [Recovered/Resolved]
